FAERS Safety Report 23523620 (Version 2)
Quarter: 2024Q1

REPORT INFORMATION
  Report Type: Spontaneous
  Country: US (occurrence: US)
  Receive Date: 20240214
  Receipt Date: 20240222
  Transmission Date: 20240409
  Serious: No
  Sender: FDA-Public Use
  Company Number: US-Eisai-EC-2024-156831

PATIENT
  Sex: Male

DRUGS (3)
  1. LENVIMA [Suspect]
     Active Substance: LENVATINIB
     Indication: Thyroid cancer
     Dates: start: 2023, end: 2023
  2. LENVIMA [Suspect]
     Active Substance: LENVATINIB
     Dates: start: 2023, end: 2024
  3. LENVIMA [Suspect]
     Active Substance: LENVATINIB
     Dates: start: 2024

REACTIONS (3)
  - Stomatitis [Not Recovered/Not Resolved]
  - Arthralgia [Not Recovered/Not Resolved]
  - Gastrointestinal disorder [Not Recovered/Not Resolved]

NARRATIVE: CASE EVENT DATE: 20230101
